FAERS Safety Report 25962266 (Version 1)
Quarter: 2025Q4

REPORT INFORMATION
  Report Type: Spontaneous
  Country: US (occurrence: US)
  Receive Date: 20251027
  Receipt Date: 20251027
  Transmission Date: 20260117
  Serious: No
  Sender: ABBVIE
  Company Number: US-ABBVIE-6519957

PATIENT

DRUGS (1)
  1. HUMIRA [Suspect]
     Active Substance: ADALIMUMAB
     Indication: Rheumatoid arthritis
     Dosage: FORM STRENGTH: 40 MG
     Route: 058

REACTIONS (6)
  - Arthritis [Unknown]
  - Rheumatoid arthritis [Unknown]
  - Pain [Unknown]
  - Back pain [Unknown]
  - Injection site pain [Unknown]
  - Neck pain [Unknown]
